FAERS Safety Report 14312794 (Version 2)
Quarter: 2018Q1

REPORT INFORMATION
  Report Type: Spontaneous
  Country: FR (occurrence: FR)
  Receive Date: 20171221
  Receipt Date: 20180310
  Transmission Date: 20180509
  Serious: Yes (Other)
  Sender: FDA-Public Use
  Company Number: FR-AUROBINDO-AUR-APL-2017-45636

PATIENT
  Age: 79 Year

DRUGS (12)
  1. PARACETAMOL [Suspect]
     Active Substance: ACETAMINOPHEN
     Indication: PRODUCT USED FOR UNKNOWN INDICATION
     Dosage: THERAPEUTIC DOSE
  2. PARACETAMOL [Suspect]
     Active Substance: ACETAMINOPHEN
     Indication: PRODUCT USED FOR UNKNOWN INDICATION
     Dosage: THERAPEUTIC DOSE ()
     Route: 065
  3. ASPIRIN. [Concomitant]
     Active Substance: ASPIRIN
     Indication: ANTIPLATELET THERAPY
     Dosage: UNK ()
  4. ATORVASTATIN [Concomitant]
     Active Substance: ATORVASTATIN
     Dosage: ()
  5. PIPERACILLIN AND TAZOBACTAM [Concomitant]
     Active Substance: PIPERACILLIN SODIUM\TAZOBACTAM SODIUM
     Indication: PRODUCT USED FOR UNKNOWN INDICATION
     Dosage: UNK ()
  6. OMEPRAZOLE BAYER 10 MG [Concomitant]
     Active Substance: OMEPRAZOLE
     Dosage: ()
  7. TRAMADOL. [Concomitant]
     Active Substance: TRAMADOL
     Dosage: UNK ()
  8. PARACETAMOL [Suspect]
     Active Substance: ACETAMINOPHEN
     Dosage: 1 G, UNK EVERY 6 HOURS
  9. PARACETAMOL [Suspect]
     Active Substance: ACETAMINOPHEN
     Dosage: 1 G, UNK EVERY 6 HOURS/ THERAPEUTIC DOSE
  10. OMEPRAZOLE BAYER 10 MG [Concomitant]
     Active Substance: OMEPRAZOLE
     Dosage: ()
  11. INSULIN [Concomitant]
     Active Substance: INSULIN NOS
     Dosage: UNK ()
  12. NEFOPAM [Concomitant]
     Active Substance: NEFOPAM
     Dosage: UNK ()

REACTIONS (1)
  - Metabolic acidosis [Unknown]
